FAERS Safety Report 26014159 (Version 1)
Quarter: 2025Q4

REPORT INFORMATION
  Report Type: Spontaneous
  Country: US (occurrence: US)
  Receive Date: 20251108
  Receipt Date: 20251108
  Transmission Date: 20260118
  Serious: No
  Sender: LEO PHARM
  Company Number: US-LEO Pharma-384035

PATIENT
  Age: 65 Year
  Sex: Female

DRUGS (1)
  1. ADBRY [Suspect]
     Active Substance: TRALOKINUMAB-LDRM
     Indication: Product used for unknown indication
     Dosage: 2 PENS ON DAY 1, THEN 1 PEN EVERY OTHER WEEK THEREAFTER; TREATMENT IS DISCONTINUED ON AN UNKNOWN DAT
     Route: 058

REACTIONS (1)
  - Drug ineffective [Unknown]
